FAERS Safety Report 24604351 (Version 1)
Quarter: 2024Q4

REPORT INFORMATION
  Report Type: Spontaneous
  Country: US (occurrence: US)
  Receive Date: 20241111
  Receipt Date: 20241111
  Transmission Date: 20250115
  Serious: No
  Sender: PFIZER
  Company Number: US-PFIZER INC-202400296969

PATIENT
  Age: 72 Year
  Sex: Female

DRUGS (1)
  1. BRAFTOVI [Suspect]
     Active Substance: ENCORAFENIB
     Dosage: 75 MG, DAILY (TAKE 4 CAPSULE BY MOUTH DAILY)
     Route: 048

REACTIONS (1)
  - Neoplasm progression [Unknown]
